FAERS Safety Report 6963606-1 (Version None)
Quarter: 2010Q3

REPORT INFORMATION
  Report Type: 
  Country: None (occurrence: None)
  Receive Date: 20100902
  Receipt Date: 20100820
  Transmission Date: 20110219
  Serious: Yes (Disabling)
  Sender: FDA-Public Use
  Company Number: US-ELI_LILLY_AND_COMPANY-US200907006484

PATIENT
  Sex: Female

DRUGS (10)
  1. FORTEO [Suspect]
     Indication: OSTEOPOROSIS
     Dosage: 20 UG, DAILY (1/D)
     Route: 058
     Dates: start: 20090219
  2. FORTEO [Suspect]
     Dosage: UNK, DAILY (1/D)
     Route: 058
  3. FORTEO [Suspect]
     Dosage: UNK, DAILY (1/D)
     Route: 058
  4. PREDNISONE [Concomitant]
     Dosage: 5 MG, DAILY (1/D)
  5. FOLIC ACID [Concomitant]
     Dosage: 1 MG, DAILY (1/D)
  6. LORTAB [Concomitant]
     Dosage: UNK, AS NEEDED
  7. CALCIUM [Concomitant]
     Dosage: 600 MG, 3/D
  8. SOMA [Concomitant]
     Dosage: UNK, AS NEEDED
  9. PLAQUENIL /00072601/ [Concomitant]
  10. REMICADE [Concomitant]

REACTIONS (7)
  - ASTHENIA [None]
  - BACK PAIN [None]
  - MUSCULAR WEAKNESS [None]
  - NO THERAPEUTIC RESPONSE [None]
  - PAIN IN EXTREMITY [None]
  - POSTURE ABNORMAL [None]
  - SCIATICA [None]
